FAERS Safety Report 24072587 (Version 1)
Quarter: 2024Q3

REPORT INFORMATION
  Report Type: Spontaneous
  Country: US (occurrence: US)
  Receive Date: 20240710
  Receipt Date: 20240710
  Transmission Date: 20241017
  Serious: Yes (Other)
  Sender: AMARIN
  Company Number: US-Amarin Pharma  Inc-2024AMR000330

PATIENT
  Age: 58 Year
  Sex: Male

DRUGS (9)
  1. VASCEPA [Suspect]
     Active Substance: ICOSAPENT ETHYL
     Indication: Product used for unknown indication
     Dosage: 2 IN AM AND 2 IN PM WITH FOOD
     Dates: start: 2013
  2. VASCEPA [Suspect]
     Active Substance: ICOSAPENT ETHYL
     Dosage: 2 IN AM AND 2 IN PM WITH FOOD
     Dates: start: 2024
  3. NEXIUM [Concomitant]
     Active Substance: ESOMEPRAZOLE MAGNESIUM
     Indication: Product used for unknown indication
     Dosage: IN THE MORNING
  4. METOPROLOL [Concomitant]
     Active Substance: METOPROLOL
     Indication: Cardiac murmur
  5. VITAMINS [Concomitant]
     Active Substance: VITAMINS
     Indication: Product used for unknown indication
  6. GARLIQUE [Concomitant]
     Active Substance: GARLIC
     Indication: Product used for unknown indication
     Dosage: DAILY
  7. VALIUM [Concomitant]
     Active Substance: DIAZEPAM
  8. MELATONIN [Concomitant]
     Active Substance: MELATONIN
     Dosage: UNKNOWN
  9. VITAMIN E [Concomitant]
     Active Substance: .ALPHA.-TOCOPHEROL
     Indication: Product used for unknown indication

REACTIONS (6)
  - Colonoscopy [Unknown]
  - Blood glucose increased [Unknown]
  - Product residue present [Not Recovered/Not Resolved]
  - Drug ineffective [Unknown]
  - Therapy interrupted [Unknown]
  - Product physical issue [Unknown]

NARRATIVE: CASE EVENT DATE: 20240101
